FAERS Safety Report 8553450-6 (Version None)
Quarter: 2012Q3

REPORT INFORMATION
  Report Type: 
  Country: None (occurrence: None)
  Receive Date: 20120725
  Receipt Date: 20120725
  Transmission Date: 20120928
  Serious: No
  Sender: FDA-Public Use
  Company Number: None

PATIENT
  Age: 82 Year
  Sex: Male
  Weight: 92.5338 kg

DRUGS (2)
  1. FENTANYL CITRATE [Suspect]
     Indication: PAIN
     Dosage: 100 MCG IV
     Route: 042
     Dates: start: 20111017, end: 20111017
  2. DILAUDID [Suspect]
     Indication: PAIN
     Dosage: 1.1 MG PCA IV
     Route: 042
     Dates: start: 20111017, end: 20111017

REACTIONS (5)
  - PCO2 DECREASED [None]
  - BLOOD PH DECREASED [None]
  - OBSTRUCTIVE AIRWAYS DISORDER [None]
  - OXYGEN SATURATION DECREASED [None]
  - RESPIRATORY RATE DECREASED [None]
